FAERS Safety Report 6568690-5 (Version None)
Quarter: 2010Q1

REPORT INFORMATION
  Report Type: 
  Country: None (occurrence: None)
  Receive Date: 20100203
  Receipt Date: 20100125
  Transmission Date: 20100710
  Serious: Yes (Hospitalization, Other)
  Sender: FDA-Public Use
  Company Number: PHHY2010BR04501

PATIENT
  Sex: Female
  Weight: 43 kg

DRUGS (5)
  1. EXELON [Suspect]
     Indication: MICROANGIOPATHY
     Dosage: 1.5 MG
     Dates: start: 20050101
  2. EXELON [Suspect]
     Dosage: 3 MG
  3. EXELON [Suspect]
     Dosage: 4.5 MG
  4. SEROQUEL [Concomitant]
     Indication: AGITATION
     Dosage: 25 MG, QD
     Route: 048
  5. ALOIS [Concomitant]
     Dosage: 10 MG, BID
     Route: 048
     Dates: start: 20090801

REACTIONS (3)
  - FALL [None]
  - LIMB OPERATION [None]
  - WEIGHT DECREASED [None]
